FAERS Safety Report 5096874-4 (Version None)
Quarter: 2006Q3

REPORT INFORMATION
  Report Type: 
  Country: None (occurrence: None)
  Receive Date: 20060901
  Receipt Date: 20060901
  Transmission Date: 20061208
  Serious: No
  Sender: FDA-Public Use
  Company Number: None

PATIENT
  Age: 67 Year
  Sex: Female
  Weight: 131.4524 kg

DRUGS (1)
  1. ARANESP [Suspect]
     Indication: ANAEMIA
     Dosage: 300MCG   EVERY 3 WEEKS    SQ
     Route: 058
     Dates: start: 20060523, end: 20060622

REACTIONS (1)
  - RASH PRURITIC [None]
